FAERS Safety Report 5585217-5 (Version None)
Quarter: 2008Q1

REPORT INFORMATION
  Report Type: 
  Country: None (occurrence: None)
  Receive Date: 20080109
  Receipt Date: 20080102
  Transmission Date: 20080703
  Serious: Yes (Other)
  Sender: FDA-Public Use
  Company Number: US-JNJFOC-20060200121

PATIENT
  Sex: Female
  Weight: 99.79 kg

DRUGS (17)
  1. RISPERDAL [Suspect]
     Route: 048
  2. RISPERDAL [Suspect]
     Indication: MANIA
     Route: 048
  3. SEROQUEL [Suspect]
     Indication: DRUG USE FOR UNKNOWN INDICATION
     Route: 048
  4. ZYPREXA [Suspect]
     Indication: DRUG USE FOR UNKNOWN INDICATION
     Route: 048
  5. VITAMIN E [Concomitant]
  6. ASCORBIC ACID [Concomitant]
  7. WELLBUTRIN SR [Concomitant]
     Indication: MANIA
  8. DEPAKOTE SR [Concomitant]
  9. ESTROGEN [Concomitant]
  10. ACTOS [Concomitant]
  11. ENALAPRIL [Concomitant]
  12. LOVASTATIN [Concomitant]
  13. DILTIAZEM [Concomitant]
  14. ECOTRIN [Concomitant]
  15. ALBUTEROL [Concomitant]
  16. BENADRYL [Concomitant]
  17. CALCIUM GLUCONATE [Concomitant]

REACTIONS (9)
  - ANGIOPATHY [None]
  - BLOOD CALCIUM INCREASED [None]
  - BRONCHIAL HYPERREACTIVITY [None]
  - DIABETES MELLITUS [None]
  - MYOCARDIAL INFARCTION [None]
  - PNEUMONIA [None]
  - PULMONARY OEDEMA [None]
  - TACHYCARDIA [None]
  - TREMOR [None]
